FAERS Safety Report 10817932 (Version 1)
Quarter: 2015Q1

REPORT INFORMATION
  Report Type: Spontaneous
  Country: US (occurrence: US)
  Receive Date: 20150218
  Receipt Date: 20150218
  Transmission Date: 20150721
  Serious: No
  Sender: FDA-Public Use
  Company Number: US-GLAXOSMITHKLINE-US2015GSK021719

PATIENT
  Sex: Male
  Weight: 71.2 kg

DRUGS (17)
  1. FISH OIL [Concomitant]
     Active Substance: FISH OIL
  2. B COMPLEX VITAMIN SUPPLEMENT [Concomitant]
  3. OXYCODONE HYDROCHLORIDE. [Concomitant]
     Active Substance: OXYCODONE HYDROCHLORIDE
  4. FENTANYL. [Concomitant]
     Active Substance: FENTANYL
  5. GLIMEPIRIDE. [Concomitant]
     Active Substance: GLIMEPIRIDE
  6. VOTRIENT [Suspect]
     Active Substance: PAZOPANIB HYDROCHLORIDE
     Indication: RENAL CANCER
     Dosage: 200 MG, QD
     Route: 048
     Dates: start: 20150117
  7. SIMVASTATIN. [Concomitant]
     Active Substance: SIMVASTATIN
  8. METFORMIN HYDROCHLORIDE. [Concomitant]
     Active Substance: METFORMIN HYDROCHLORIDE
  9. ENDOCET [Concomitant]
     Active Substance: ACETAMINOPHEN\OXYCODONE HYDROCHLORIDE
  10. LISINOPRIL. [Concomitant]
     Active Substance: LISINOPRIL
  11. ONDANSETRON HCL TABLET [Concomitant]
  12. NEXIUM [Concomitant]
     Active Substance: ESOMEPRAZOLE MAGNESIUM
  13. NIFEDEPINE [Concomitant]
  14. CYMBALTA [Concomitant]
     Active Substance: DULOXETINE HYDROCHLORIDE
  15. ASPIRIN EC [Concomitant]
     Active Substance: ASPIRIN
  16. HYDROCHLOROTHIAZIDE. [Concomitant]
     Active Substance: HYDROCHLOROTHIAZIDE
  17. DULOXETINE HYDROCHLORIDE. [Concomitant]
     Active Substance: DULOXETINE HYDROCHLORIDE

REACTIONS (4)
  - Weight decreased [Unknown]
  - Nausea [Unknown]
  - Decreased appetite [Unknown]
  - Fatigue [Unknown]
